FAERS Safety Report 20480814 (Version 1)
Quarter: 2022Q1

REPORT INFORMATION
  Report Type: Spontaneous
  Country: US (occurrence: US)
  Receive Date: 20220216
  Receipt Date: 20220216
  Transmission Date: 20220424
  Serious: Yes (Hospitalization, Other)
  Sender: FDA-Public Use
  Company Number: US-OTSUKA-2021_033840

PATIENT
  Age: 4 Month
  Sex: Male

DRUGS (11)
  1. BUSULFAN [Suspect]
     Active Substance: BUSULFAN
     Indication: Transferrin decreased
     Dosage: 0.8-1.1 MG/KG/DOSE Q 6 HRS ON DAY -7,-6,-5, -4 UNDER CURVE 85-95 (MG , H)/L)
     Route: 042
  2. BUSULFAN [Suspect]
     Active Substance: BUSULFAN
     Indication: Bone marrow conditioning regimen
  3. BUSULFAN [Suspect]
     Active Substance: BUSULFAN
     Indication: Stem cell transplant
  4. CYCLOSPORINE [Suspect]
     Active Substance: CYCLOSPORINE
     Indication: Graft versus host disease
     Dosage: TARGET LEVEL OF 150-250 NG/ML) STARTING ON DAY -2
     Route: 065
  5. CYCLOSPORINE [Suspect]
     Active Substance: CYCLOSPORINE
     Dosage: TAPERED STARTING AT 6 MONTHS FOR PATIENTS WITH UNRELATED DONOR
     Route: 065
  6. METHOTREXATE [Suspect]
     Active Substance: METHOTREXATE
     Indication: Graft versus host disease
     Dosage: 15 MG/MG2 IV ON DAY +1
     Route: 042
  7. METHOTREXATE [Suspect]
     Active Substance: METHOTREXATE
     Dosage: 10 MG/M2 ON DAY +3,+6,AND +11
     Route: 042
  8. FLUDARABINE [Suspect]
     Active Substance: FLUDARABINE PHOSPHATE
     Indication: Graft versus host disease
     Dosage: 40 MG/M2, QD ON DAY -5,-4,-3,-2
     Route: 065
  9. THYMOCYTE IMMUNE GLOBULIN NOS [Suspect]
     Active Substance: THYMOCYTE IMMUNE GLOBULIN NOS
     Indication: Graft versus host disease
     Dosage: 30 MG/KG DAILY ON DAYS -3, -2, AND -1
     Route: 065
  10. METHYLPREDNISOLONE [Suspect]
     Active Substance: METHYLPREDNISOLONE
     Indication: Graft versus host disease
     Dosage: 1 MG/KG, QD FROM DAY +7 THROUGH DAY +20
     Route: 065
  11. METHYLPREDNISOLONE [Suspect]
     Active Substance: METHYLPREDNISOLONE
     Dosage: TAPER WAS INITIATED ON DAY +21 AND WAS WEANED BY 10% OF THE STARTING DOSE PER WEEK
     Route: 065

REACTIONS (5)
  - Febrile convulsion [Recovered/Resolved]
  - Klebsiella bacteraemia [Recovered/Resolved]
  - Enterobacter bacteraemia [Recovered/Resolved]
  - Septic shock [Recovered/Resolved]
  - Product use in unapproved indication [Unknown]
